FAERS Safety Report 4832001-3 (Version None)
Quarter: 2005Q4

REPORT INFORMATION
  Report Type: 
  Country: None (occurrence: None)
  Receive Date: 20051118
  Receipt Date: 20051109
  Transmission Date: 20060501
  Serious: Yes (Hospitalization)
  Sender: FDA-Public Use
  Company Number: PH-JNJFOC-20051102269

PATIENT
  Age: 3 Month
  Sex: Female

DRUGS (6)
  1. TOPAMAX [Suspect]
  2. TOPAMAX [Suspect]
  3. TOPAMAX [Suspect]
     Indication: EPILEPSY
  4. TOPAMAX [Suspect]
     Indication: ENCEPHALOPATHY
  5. LEVETIRACETAM [Suspect]
  6. CLONAZEPAM [Concomitant]

REACTIONS (1)
  - HAEMATEMESIS [None]
